FAERS Safety Report 7461991-8 (Version None)
Quarter: 2011Q2

REPORT INFORMATION
  Report Type: 
  Country: None (occurrence: None)
  Receive Date: 20110506
  Receipt Date: 20110503
  Transmission Date: 20111010
  Serious: Yes (Life-Threatening, Other)
  Sender: FDA-Public Use
  Company Number: PHFR2010GB00529

PATIENT
  Sex: Male

DRUGS (5)
  1. LOPERAMIDE [Concomitant]
     Dosage: 4 MG, UNK
     Route: 048
     Dates: start: 20100817
  2. CLOZARIL [Suspect]
     Route: 048
     Dates: start: 20010701
  3. IBUPROFEN [Concomitant]
     Indication: MUSCULOSKELETAL PAIN
     Dosage: PRN
     Route: 048
  4. CLOZARIL [Suspect]
     Indication: SCHIZOPHRENIA
     Route: 048
     Dates: start: 19990822
  5. GRANULOCYTE COLONY STIMULATING FACTOR [Concomitant]

REACTIONS (9)
  - HAEMOGLOBIN DECREASED [None]
  - CIRCULATORY COLLAPSE [None]
  - MEAN CELL VOLUME DECREASED [None]
  - LYMPHOCYTE COUNT DECREASED [None]
  - LOSS OF CONSCIOUSNESS [None]
  - MEAN CELL HAEMOGLOBIN DECREASED [None]
  - DIZZINESS [None]
  - NON-HODGKIN'S LYMPHOMA [None]
  - DIFFERENTIAL WHITE BLOOD CELL COUNT ABNORMAL [None]
